FAERS Safety Report 9751505 (Version 1)
Quarter: 2013Q4

REPORT INFORMATION
  Report Type: Spontaneous
  Country: US (occurrence: US)
  Receive Date: 20131212
  Receipt Date: 20131212
  Transmission Date: 20140711
  Serious: Yes (Other)
  Sender: FDA-Public Use
  Company Number: US-NAPPMUNDI-USA-2012-0097046

PATIENT
  Age: 48 Year
  Sex: Male

DRUGS (5)
  1. DILAUDID TABLET [Suspect]
     Indication: BACK PAIN
     Dosage: 4 MG, BID
     Route: 048
     Dates: start: 20121107, end: 20121113
  2. DIAZEPAM [Concomitant]
     Dosage: 5 MG, QID
  3. OXYCONTIN (NDA 22-272) [Concomitant]
     Dosage: 80 MG, TID
  4. HYDROMORPHONE HCL (SIMILAR TO 19-892) [Concomitant]
     Dosage: UNK
  5. ANTIHYPERTENSIVES [Concomitant]
     Dosage: UNK

REACTIONS (2)
  - Drug hypersensitivity [Recovered/Resolved]
  - Respiratory depression [Recovered/Resolved]
